FAERS Safety Report 9483401 (Version 1)
Quarter: 2013Q3

REPORT INFORMATION
  Report Type: Spontaneous
  Country: US (occurrence: US)
  Receive Date: 20130828
  Receipt Date: 20130828
  Transmission Date: 20140515
  Serious: Yes (Other)
  Sender: FDA-Public Use
  Company Number: US-AMGEN-KDL265587

PATIENT
  Age: 80 Year
  Sex: Male

DRUGS (4)
  1. PROCRIT [Suspect]
     Indication: RENAL FAILURE CHRONIC
     Dosage: 4000 IU, 3 TIMES/WK
     Route: 065
     Dates: start: 200710
  2. FUROSEMIDE [Concomitant]
  3. TERAZOSIN [Concomitant]
  4. ACETYLSALICYLIC ACID [Concomitant]

REACTIONS (1)
  - Renal failure chronic [Unknown]
